FAERS Safety Report 4864587-7 (Version None)
Quarter: 2005Q4

REPORT INFORMATION
  Report Type: 
  Country: None (occurrence: None)
  Receive Date: 20051222
  Receipt Date: 20051005
  Transmission Date: 20060501
  Serious: Yes (Hospitalization)
  Sender: FDA-Public Use
  Company Number: JP-NOVOPROD-247641

PATIENT
  Age: 50 Year
  Sex: Male
  Weight: 74 kg

DRUGS (4)
  1. PENFILL R CHU [Suspect]
     Indication: INSULIN-REQUIRING TYPE II DIABETES MELLITUS
     Dosage: 4-4-4
     Route: 058
     Dates: start: 20030528, end: 20030604
  2. PENFILL 30R CHU [Suspect]
     Indication: INSULIN-REQUIRING TYPE II DIABETES MELLITUS
     Dosage: 14-18 IU
     Route: 058
     Dates: start: 20030506, end: 20030731
  3. LANTUS [Concomitant]
     Indication: INSULIN-REQUIRING TYPE II DIABETES MELLITUS
     Dates: start: 20030814
  4. METFORMIN [Concomitant]
     Indication: INSULIN-REQUIRING TYPE II DIABETES MELLITUS
     Dosage: 500 MG, QD
     Route: 048
     Dates: start: 20030814

REACTIONS (20)
  - ANTI-GAD ANTIBODY POSITIVE [None]
  - BLOOD GLUCOSE INCREASED [None]
  - DIABETES MELLITUS INADEQUATE CONTROL [None]
  - DRUG HYPERSENSITIVITY [None]
  - EOSINOPHIL COUNT INCREASED [None]
  - GLYCOSYLATED HAEMOGLOBIN INCREASED [None]
  - HERPES SIMPLEX [None]
  - HUMAN HERPES VIRUS 6 SEROLOGY POSITIVE [None]
  - HYPERGLYCAEMIA [None]
  - INFLUENZA LIKE ILLNESS [None]
  - INJECTION SITE ERYTHEMA [None]
  - INJECTION SITE INDURATION [None]
  - INJECTION SITE REACTION [None]
  - PRURITUS [None]
  - PYREXIA [None]
  - RASH [None]
  - SOMNOLENCE [None]
  - UPPER RESPIRATORY TRACT INFLAMMATION [None]
  - URINE KETONE BODY PRESENT [None]
  - VIRAL INFECTION [None]
